FAERS Safety Report 5786510-3 (Version None)
Quarter: 2008Q2

REPORT INFORMATION
  Report Type: 
  Country: None (occurrence: None)
  Receive Date: 20080624
  Receipt Date: 20080306
  Transmission Date: 20081010
  Serious: No
  Sender: FDA-Public Use
  Company Number: US-BOEHRINGER INGELHEIM GMBH, GERMANY-2007-BP-25518BP

PATIENT
  Sex: Female
  Weight: 57 kg

DRUGS (1)
  1. MIRAPEX [Suspect]
     Indication: PARKINSON'S DISEASE
     Dates: start: 19991217, end: 20070101

REACTIONS (4)
  - EMOTIONAL DISTRESS [None]
  - OBSESSIVE-COMPULSIVE DISORDER [None]
  - PAIN [None]
  - PATHOLOGICAL GAMBLING [None]
